FAERS Safety Report 16936003 (Version 2)
Quarter: 2020Q1

REPORT INFORMATION
  Report Type: Spontaneous
  Country: US (occurrence: US)
  Receive Date: 20191018
  Receipt Date: 20200120
  Transmission Date: 20200409
  Serious: No
  Sender: FDA-Public Use
  Company Number: US-INSMED, INC.-US-INS-19-02843

PATIENT
  Age: 71 Year
  Sex: Female

DRUGS (5)
  1. AZITHROMYCIN ANHYDROUS. [Concomitant]
     Active Substance: AZITHROMYCIN ANHYDROUS
     Indication: MYCOBACTERIUM AVIUM COMPLEX INFECTION
  2. LAMIRA NEBULIZER SYSTEM [Suspect]
     Active Substance: DEVICE
  3. ARIKAYCE [Suspect]
     Active Substance: AMIKACIN
     Route: 055
     Dates: start: 20190807, end: 20190809
  4. CLOFAZIMINE [Concomitant]
     Active Substance: CLOFAZIMINE
     Indication: MYCOBACTERIUM AVIUM COMPLEX INFECTION
  5. ARIKAYCE [Suspect]
     Active Substance: AMIKACIN
     Indication: MYCOBACTERIUM AVIUM COMPLEX INFECTION
     Route: 055
     Dates: start: 20190709, end: 20190719

REACTIONS (7)
  - Wheezing [Recovered/Resolved]
  - Cough [Recovered/Resolved]
  - Dyspnoea [Recovered/Resolved]
  - Drug ineffective [Unknown]
  - Dysphonia [Recovered/Resolved]
  - Malaise [Recovered/Resolved]
  - Diarrhoea [Recovered/Resolved]

NARRATIVE: CASE EVENT DATE: 20190709
